FAERS Safety Report 6133273-8 (Version None)
Quarter: 2009Q1

REPORT INFORMATION
  Report Type: 
  Country: None (occurrence: None)
  Receive Date: 20090326
  Receipt Date: 20090313
  Transmission Date: 20090719
  Serious: Yes (Other)
  Sender: FDA-Public Use
  Company Number: GB-ROCHE-621911

PATIENT
  Sex: Male

DRUGS (2)
  1. PEG-INTERFERON ALFA NOS [Suspect]
     Route: 065
     Dates: start: 20081205
  2. RIBAVIRIN [Suspect]
     Route: 065
     Dates: start: 20081205

REACTIONS (1)
  - FACIAL PALSY [None]
